FAERS Safety Report 5235977-8 (Version None)
Quarter: 2007Q1

REPORT INFORMATION
  Report Type: 
  Country: None (occurrence: None)
  Receive Date: 20070212
  Receipt Date: 20070129
  Transmission Date: 20070707
  Serious: Yes (Other)
  Sender: FDA-Public Use
  Company Number: US-ELI_LILLY_AND_COMPANY-US200702000794

PATIENT
  Age: 49 Year
  Sex: Male

DRUGS (3)
  1. HUMULIN N [Suspect]
     Indication: DIABETES MELLITUS
  2. HUMALOG [Suspect]
     Indication: DIABETES MELLITUS
     Dosage: UNK, UNK
  3. BYETTA [Concomitant]
     Indication: DIABETES MELLITUS
     Dosage: 10 UNK, 2/D
     Route: 058
     Dates: start: 20060101

REACTIONS (5)
  - BLOOD GLUCOSE INCREASED [None]
  - INJECTION SITE BRUISING [None]
  - NAUSEA [None]
  - SUDDEN HEARING LOSS [None]
  - VIRAL INFECTION [None]
